FAERS Safety Report 18534655 (Version 1)
Quarter: 2020Q4

REPORT INFORMATION
  Report Type: Report from Study
  Country: CA (occurrence: CA)
  Receive Date: 20201123
  Receipt Date: 20201123
  Transmission Date: 20210114
  Serious: Yes (Death, Other)
  Sender: FDA-Public Use
  Company Number: CA-MYLANLABS-2020M1095211

PATIENT
  Age: 59 Year
  Sex: Female

DRUGS (1)
  1. CLOZAPINE. [Suspect]
     Active Substance: CLOZAPINE
     Indication: PRODUCT USED FOR UNKNOWN INDICATION
     Dosage: UNK
     Dates: start: 20081230

REACTIONS (2)
  - Neoplasm malignant [Fatal]
  - Granulocytopenia [Recovered/Resolved]

NARRATIVE: CASE EVENT DATE: 20090220
